FAERS Safety Report 16516316 (Version 1)
Quarter: 2019Q3

REPORT INFORMATION
  Report Type: Spontaneous
  Country: US (occurrence: US)
  Receive Date: 20190702
  Receipt Date: 20190702
  Transmission Date: 20191004
  Serious: No
  Sender: FDA-Public Use
  Company Number: US-PFM-2018-05350

PATIENT

DRUGS (9)
  1. HEMANGEOL [Suspect]
     Active Substance: PROPRANOLOL HYDROCHLORIDE
     Indication: INFANTILE HAEMANGIOMA
     Dosage: 0.5 ML, BID (2/DAY)
     Route: 048
     Dates: start: 20171220
  2. HEMANGEOL [Suspect]
     Active Substance: PROPRANOLOL HYDROCHLORIDE
     Dosage: 0.5 ML, BID (2/DAY)
     Route: 048
     Dates: start: 20180117, end: 201804
  3. HEMANGEOL [Suspect]
     Active Substance: PROPRANOLOL HYDROCHLORIDE
     Dosage: 1.5 ML, BID (2/DAY)
     Route: 048
     Dates: start: 20180510
  4. HEMANGEOL [Suspect]
     Active Substance: PROPRANOLOL HYDROCHLORIDE
     Dosage: 1.4 ML, BID (2/DAY)
     Route: 048
  5. HEMANGEOL [Suspect]
     Active Substance: PROPRANOLOL HYDROCHLORIDE
     Dosage: 1.5 ML, SINGLE IN THE MORNING
     Route: 048
     Dates: start: 20180509
  6. HEMANGEOL [Suspect]
     Active Substance: PROPRANOLOL HYDROCHLORIDE
     Dosage: 0.5 ML, SINGLE AT NIGHT
     Route: 048
     Dates: start: 20180509
  7. HEMANGEOL [Suspect]
     Active Substance: PROPRANOLOL HYDROCHLORIDE
     Dosage: 1 ML, SINGLE IN THE MORNING
     Route: 048
     Dates: start: 20180510
  8. HEMANGEOL [Suspect]
     Active Substance: PROPRANOLOL HYDROCHLORIDE
     Dosage: 3.2 ML, BID (2/DAY)
     Route: 048
     Dates: start: 20180508
  9. HEMANGEOL [Suspect]
     Active Substance: PROPRANOLOL HYDROCHLORIDE
     Dosage: 1.1 ML, BID (2/DAY)
     Route: 048

REACTIONS (3)
  - Product expiration date issue [Unknown]
  - Pyrexia [Recovered/Resolved]
  - Lethargy [Recovered/Resolved]

NARRATIVE: CASE EVENT DATE: 20180508
